FAERS Safety Report 10429875 (Version 3)
Quarter: 2014Q4

REPORT INFORMATION
  Report Type: Spontaneous
  Country: US (occurrence: US)
  Receive Date: 20140904
  Receipt Date: 20141114
  Transmission Date: 20150528
  Serious: No
  Sender: FDA-Public Use
  Company Number: US-009507513-1408USA016986

PATIENT
  Sex: Female

DRUGS (1)
  1. IMPLANON [Suspect]
     Active Substance: ETONOGESTREL
     Indication: CONTRACEPTION
     Dosage: 1 DF, UNK
     Route: 059
     Dates: start: 201104

REACTIONS (12)
  - Incorrect drug administration duration [Unknown]
  - Amenorrhoea [Recovered/Resolved]
  - Vulvovaginal mycotic infection [Unknown]
  - Weight increased [Unknown]
  - Hormone level abnormal [Unknown]
  - Acne [Unknown]
  - Gingival recession [Unknown]
  - Metrorrhagia [Recovered/Resolved]
  - Metrorrhagia [Not Recovered/Not Resolved]
  - Medical device complication [Not Recovered/Not Resolved]
  - Hypoaesthesia [Unknown]
  - Paraesthesia oral [Unknown]

NARRATIVE: CASE EVENT DATE: 2011
